FAERS Safety Report 9479041 (Version 1)
Quarter: 2013Q3

REPORT INFORMATION
  Report Type: Spontaneous
  Country: IT (occurrence: IT)
  Receive Date: 20130827
  Receipt Date: 20130827
  Transmission Date: 20140515
  Serious: Yes (Hospitalization)
  Sender: FDA-Public Use
  Company Number: IT-TEVA-428405ISR

PATIENT
  Age: 69 Year
  Sex: Female

DRUGS (1)
  1. CLOPIDOGREL [Suspect]
     Indication: MYOCARDIAL ISCHAEMIA
     Dosage: 75 MILLIGRAM DAILY;
     Route: 048

REACTIONS (3)
  - Syncope [Recovering/Resolving]
  - Abdominal pain [Recovering/Resolving]
  - Dysuria [Recovering/Resolving]
